FAERS Safety Report 7546278-7 (Version None)
Quarter: 2011Q2

REPORT INFORMATION
  Report Type: 
  Country: None (occurrence: None)
  Receive Date: 20110614
  Receipt Date: 20040317
  Transmission Date: 20111010
  Serious: Yes (Hospitalization)
  Sender: FDA-Public Use
  Company Number: PHFR2003GB04914

PATIENT
  Sex: Male

DRUGS (3)
  1. BUSPIRONE HCL [Concomitant]
     Route: 065
  2. CLOZAPINE [Suspect]
     Indication: SCHIZOPHRENIA
     Route: 048
     Dates: start: 20010322, end: 20031128
  3. AMISULPRIDE [Concomitant]
     Route: 065

REACTIONS (9)
  - MALAISE [None]
  - HYPOPHAGIA [None]
  - RHABDOMYOLYSIS [None]
  - RENAL FAILURE ACUTE [None]
  - MUSCLE RIGIDITY [None]
  - BLOOD CREATINE PHOSPHOKINASE INCREASED [None]
  - FLUID INTAKE REDUCED [None]
  - RENAL FAILURE [None]
  - CATATONIA [None]
